FAERS Safety Report 25075555 (Version 1)
Quarter: 2025Q1

REPORT INFORMATION
  Report Type: Report from Study
  Country: JP (occurrence: JP)
  Receive Date: 20250313
  Receipt Date: 20250313
  Transmission Date: 20250408
  Serious: Yes (Hospitalization, Other)
  Sender: ALEXION PHARMACEUTICALS
  Company Number: JP-AstraZeneca-CH-00626429A

PATIENT
  Age: 49 Year
  Weight: 48.1 kg

DRUGS (17)
  1. ULTOMIRIS [Suspect]
     Active Substance: RAVULIZUMAB-CWVZ
     Indication: Neuromyelitis optica spectrum disorder
  2. ULTOMIRIS [Suspect]
     Active Substance: RAVULIZUMAB-CWVZ
  3. CEFTRIAXONE [Suspect]
     Active Substance: CEFTRIAXONE
     Route: 065
  4. PREDNISOLONE [Concomitant]
     Active Substance: PREDNISOLONE
     Indication: Neuromyelitis optica spectrum disorder
     Dosage: 2.5 MILLIGRAM, QD
  5. TACROLIMUS [Concomitant]
     Active Substance: TACROLIMUS
     Indication: Neuromyelitis optica spectrum disorder
     Dosage: 2 MILLIGRAM, QD
  6. FAMOTIDINE [Concomitant]
     Active Substance: FAMOTIDINE
     Indication: Gastritis prophylaxis
     Dosage: 10 MILLIGRAM, QD
  7. ALFACALCIDOL [Concomitant]
     Active Substance: ALFACALCIDOL
     Indication: Osteonecrosis
     Dosage: 1 MICROGRAM, QD
  8. PRAVASTATIN SODIUM [Concomitant]
     Active Substance: PRAVASTATIN SODIUM
     Indication: Hyperlipidaemia
     Dosage: 10 MILLIGRAM, QD
  9. Daifen [Concomitant]
     Indication: Infection prophylaxis
     Dosage: 1 DOSAGE FORM, QD
  10. LOXOPROFEN SODIUM [Concomitant]
     Active Substance: LOXOPROFEN SODIUM
     Indication: Analgesic therapy
     Dosage: 60 MILLIGRAM, TID
  11. Cartine l [Concomitant]
     Indication: Carnitine deficiency
     Dosage: 250 MILLIGRAM, QD
  12. ADETPHOS [Concomitant]
     Active Substance: ADENOSINE TRIPHOSPHATE
     Indication: Neuromyelitis optica spectrum disorder
     Dosage: 20 MILLIGRAM, BID
  13. MIYA-BM [Concomitant]
     Active Substance: CLOSTRIDIUM BUTYRICUM SPORES STRAIN M-55
     Indication: Gastrointestinal disorder
     Dosage: 1 DOSAGE FORM, TID
  14. MAXALT [Concomitant]
     Active Substance: RIZATRIPTAN BENZOATE
     Indication: Migraine
  15. DEPAKENE [Concomitant]
     Active Substance: VALPROIC ACID
     Indication: Migraine
     Dosage: 100 MILLIGRAM, QD
  16. RIVOTRIL [Concomitant]
     Active Substance: CLONAZEPAM
     Indication: Migraine
     Dosage: 0.5 MILLIGRAM, QD
  17. CELECOXIB [Concomitant]
     Active Substance: CELECOXIB
     Indication: Analgesic therapy
     Dosage: 100 MILLIGRAM, BID

REACTIONS (6)
  - Headache [Recovered/Resolved]
  - Neuromyelitis optica spectrum disorder [Recovered/Resolved]
  - Nausea [Recovered/Resolved]
  - Oropharyngeal pain [Recovered/Resolved]
  - Stomatitis [Recovered/Resolved]
  - Hypersensitivity [Unknown]
